FAERS Safety Report 6044456-X (Version None)
Quarter: 2009Q1

REPORT INFORMATION
  Report Type: 
  Country: None (occurrence: None)
  Receive Date: 20090120
  Receipt Date: 20090106
  Transmission Date: 20090719
  Serious: Yes (Other)
  Sender: FDA-Public Use
  Company Number: BR-PFIZER INC-2008100442

PATIENT

DRUGS (1)
  1. CELEBRA [Suspect]
     Indication: PAIN
     Dosage: 200 MG, 1X/DAY
     Route: 048
     Dates: start: 20081201, end: 20081201

REACTIONS (6)
  - DERMATITIS ALLERGIC [None]
  - DRUG INEFFECTIVE [None]
  - PRURITUS [None]
  - SENSORY DISTURBANCE [None]
  - SWELLING FACE [None]
  - WOUND [None]
